FAERS Safety Report 15649801 (Version 1)
Quarter: 2018Q4

REPORT INFORMATION
  Report Type: Spontaneous
  Country: US (occurrence: US)
  Receive Date: 20181123
  Receipt Date: 20181123
  Transmission Date: 20190205
  Serious: No
  Sender: FDA-Public Use
  Company Number: US-BEH-2018096953

PATIENT
  Age: 63 Year
  Sex: Female

DRUGS (1)
  1. HIZENTRA [Suspect]
     Active Substance: HUMAN IMMUNOGLOBULIN G
     Indication: IMMUNODEFICIENCY COMMON VARIABLE
     Dosage: 6 G, QW
     Route: 058
     Dates: start: 201805

REACTIONS (5)
  - Dizziness [Unknown]
  - Vasodilatation [Unknown]
  - Fatigue [Unknown]
  - Feeling hot [Unknown]
  - Presyncope [Unknown]

NARRATIVE: CASE EVENT DATE: 201811
